FAERS Safety Report 10067973 (Version 1)
Quarter: 2014Q2

REPORT INFORMATION
  Report Type: Spontaneous
  Country: US (occurrence: US)
  Receive Date: 20140409
  Receipt Date: 20140409
  Transmission Date: 20141212
  Serious: Yes (Other)
  Sender: FDA-Public Use
  Company Number: US-PFIZER INC-2014097061

PATIENT
  Age: 80 Year
  Sex: Female
  Weight: 77.1 kg

DRUGS (2)
  1. CELEBREX [Suspect]
     Indication: RHEUMATOID ARTHRITIS
     Dosage: 200 MG, 2X/DAY
     Dates: start: 2002
  2. CELEBREX [Suspect]
     Dosage: 200 MG, DAILY
     Dates: start: 2013

REACTIONS (3)
  - Arthropathy [Unknown]
  - Arthropathy [Unknown]
  - Drug ineffective [Unknown]
